FAERS Safety Report 5218424-1 (Version None)
Quarter: 2007Q1

REPORT INFORMATION
  Report Type: 
  Country: None (occurrence: None)
  Receive Date: 20070124
  Receipt Date: 20070115
  Transmission Date: 20070707
  Serious: Yes (Hospitalization, Other)
  Sender: FDA-Public Use
  Company Number: GB-PFIZER INC-2007004617

PATIENT
  Sex: Female

DRUGS (1)
  1. LUSTRAL [Suspect]
     Indication: DEPRESSION

REACTIONS (2)
  - ANGINA PECTORIS [None]
  - CARDIOVASCULAR DISORDER [None]
